FAERS Safety Report 6013187-4 (Version None)
Quarter: 2008Q4

REPORT INFORMATION
  Report Type: 
  Country: None (occurrence: None)
  Receive Date: 20081219
  Receipt Date: 20081211
  Transmission Date: 20090506
  Serious: Yes (Hospitalization)
  Sender: FDA-Public Use
  Company Number: FR-JNJFOC-20081202898

PATIENT
  Age: 79 Year
  Sex: Male

DRUGS (6)
  1. OFLOXACIN [Suspect]
     Indication: SKIN ULCER
     Route: 048
  2. PYOSTACINE [Interacting]
     Indication: SKIN ULCER
     Route: 048
  3. SINTROM [Interacting]
     Route: 048
  4. SINTROM [Interacting]
     Route: 048
  5. SINTROM [Interacting]
     Indication: ATRIAL FIBRILLATION
     Route: 048
  6. KARDEGIC [Concomitant]
     Indication: PROPHYLAXIS
     Route: 048

REACTIONS (2)
  - DRUG INTERACTION [None]
  - INTERNATIONAL NORMALISED RATIO INCREASED [None]
